FAERS Safety Report 8367557-X (Version None)
Quarter: 2012Q1

REPORT INFORMATION
  Report Type: 
  Country: None (occurrence: None)
  Receive Date: 20120323
  Receipt Date: 20110929
  Transmission Date: 20120608
  Serious: Yes (Hospitalization)
  Sender: FDA-Public Use
  Company Number: 163-21880-11072692

PATIENT
  Age: 73 Year
  Sex: Male

DRUGS (13)
  1. ZOLOFT [Concomitant]
  2. REVLIMID [Suspect]
     Indication: MULTIPLE MYELOMA
     Dosage: 25 MG, DAILY X 21 DAYS/Q28 DAYS, PO
     Route: 048
     Dates: start: 20101201
  3. POTASSIUM CHLORIDE [Concomitant]
  4. OXYGEN (OXYGEN) [Concomitant]
  5. DEXAMETHASONE [Concomitant]
  6. LEVAQUIN [Concomitant]
  7. ATIVAN [Concomitant]
  8. PREDNISONE TAB [Concomitant]
  9. MIRALAX [Concomitant]
  10. ZOMETA [Concomitant]
  11. AMBIEN [Concomitant]
  12. LOVENOX [Concomitant]
  13. METAMUCIL (METAMUCIL ^PROCTER + GAMBLE^) [Concomitant]

REACTIONS (3)
  - DIARRHOEA [None]
  - BRONCHITIS [None]
  - HYPOKALAEMIA [None]
